FAERS Safety Report 24141738 (Version 1)
Quarter: 2024Q3

REPORT INFORMATION
  Report Type: Spontaneous
  Country: US (occurrence: None)
  Receive Date: 20240726
  Receipt Date: 20240726
  Transmission Date: 20241017
  Serious: Yes (Life-Threatening)
  Sender: Public
  Company Number: None

PATIENT
  Age: 30 Year
  Sex: Female
  Weight: 60.75 kg

DRUGS (7)
  1. SINGULAIR [Suspect]
     Active Substance: MONTELUKAST SODIUM
     Indication: Asthma
     Dosage: OTHER QUANTITY : 1 TABLET(S);?FREQUENCY : AT BEDTIME;?
     Route: 048
     Dates: start: 20040510, end: 20240609
  2. VITAMIN D3 [Concomitant]
     Active Substance: CHOLECALCIFEROL
  3. GABA [Concomitant]
     Active Substance: HOMEOPATHICS
  4. INOSITOL [Concomitant]
     Active Substance: INOSITOL
  5. MAGNESIUM [Concomitant]
     Active Substance: MAGNESIUM
  6. METHYLCOBALAMIN [Concomitant]
     Active Substance: METHYLCOBALAMIN
  7. FISH OIL [Concomitant]
     Active Substance: FISH OIL

REACTIONS (9)
  - Insomnia [None]
  - Mania [None]
  - Depression [None]
  - Psychotic disorder [None]
  - Anger [None]
  - Headache [None]
  - Heart rate increased [None]
  - Anxiety [None]
  - Feeling abnormal [None]

NARRATIVE: CASE EVENT DATE: 20240709
